FAERS Safety Report 8499139-3 (Version None)
Quarter: 2012Q3

REPORT INFORMATION
  Report Type: 
  Country: None (occurrence: None)
  Receive Date: 20120710
  Receipt Date: 20120627
  Transmission Date: 20120928
  Serious: Yes (Hospitalization, Other)
  Sender: FDA-Public Use
  Company Number: US-ELI_LILLY_AND_COMPANY-US201206009696

PATIENT
  Sex: Male

DRUGS (5)
  1. HUMULIN 70/30 [Suspect]
     Dosage: 10 U, EACH EVENING
     Dates: start: 20111101
  2. HUMULIN 70/30 [Suspect]
     Indication: DIABETES MELLITUS
     Dosage: UNK, UNKNOWN
  3. HUMULIN 70/30 [Suspect]
     Dosage: 20 U, EACH MORNING
     Dates: start: 20111101
  4. HUMULIN 70/30 [Suspect]
     Dosage: 17 U, EACH MORNING
  5. HUMULIN 70/30 [Suspect]
     Dosage: 13 U, EACH EVENING

REACTIONS (2)
  - HOSPITALISATION [None]
  - RENAL FAILURE [None]
